FAERS Safety Report 17908543 (Version 2)
Quarter: 2020Q3

REPORT INFORMATION
  Report Type: Spontaneous
  Country: US (occurrence: US)
  Receive Date: 20200617
  Receipt Date: 20200706
  Transmission Date: 20201103
  Serious: Yes (Other)
  Sender: FDA-Public Use
  Company Number: US-ASTRAZENECA-2020SE76182

PATIENT
  Age: 28467 Day
  Sex: Female
  Weight: 81.6 kg

DRUGS (1)
  1. BYDUREON BCISE [Suspect]
     Active Substance: EXENATIDE
     Indication: DIABETES MELLITUS
     Route: 065

REACTIONS (8)
  - Wrong technique in device usage process [Unknown]
  - Device issue [Unknown]
  - Eye disorder [Unknown]
  - Visual impairment [Unknown]
  - Vision blurred [Unknown]
  - Decreased appetite [Unknown]
  - Product dose omission issue [Recovered/Resolved]
  - Incorrect dose administered by device [Unknown]

NARRATIVE: CASE EVENT DATE: 20200605
